FAERS Safety Report 14842680 (Version 2)
Quarter: 2018Q2

REPORT INFORMATION
  Report Type: Spontaneous
  Country: US (occurrence: US)
  Receive Date: 20180503
  Receipt Date: 20180626
  Transmission Date: 20180711
  Serious: No
  Sender: FDA-Public Use
  Company Number: US-GLAXOSMITHKLINE-US2018073804

PATIENT
  Age: 30 Year
  Sex: Female

DRUGS (1)
  1. NICORETTE MINT [Suspect]
     Active Substance: NICOTINE
     Indication: DRUG WITHDRAWAL MAINTENANCE THERAPY
     Dosage: 4 MG, UNK
     Dates: end: 20180422

REACTIONS (4)
  - Paraesthesia oral [Unknown]
  - Oral pruritus [Unknown]
  - Product quality issue [Unknown]
  - Throat irritation [Unknown]
